FAERS Safety Report 6138033-X (Version None)
Quarter: 2009Q1

REPORT INFORMATION
  Report Type: 
  Country: None (occurrence: None)
  Receive Date: 20090331
  Receipt Date: 20090319
  Transmission Date: 20090719
  Serious: Yes (Other)
  Sender: FDA-Public Use
  Company Number: PR-TYCO HEALTHCARE/MALLINCKRODT-T200900727

PATIENT
  Age: 54 Year
  Sex: Female
  Weight: 68.027 kg

DRUGS (1)
  1. OPTIRAY 300 [Suspect]
     Dosage: 100 ML, SINGLE
     Route: 042

REACTIONS (5)
  - COUGH [None]
  - DYSARTHRIA [None]
  - RASH [None]
  - RESPIRATORY DISTRESS [None]
  - SKIN OEDEMA [None]
